FAERS Safety Report 14336131 (Version 2)
Quarter: 2018Q1

REPORT INFORMATION
  Report Type: Spontaneous
  Country: FR (occurrence: FR)
  Receive Date: 20171229
  Receipt Date: 20180214
  Transmission Date: 20180509
  Serious: Yes (Hospitalization)
  Sender: FDA-Public Use
  Company Number: FR-CIPLA LTD.-2017FR27453

PATIENT

DRUGS (4)
  1. MICROPAKINE [Suspect]
     Active Substance: VALPROIC ACID
     Indication: EPILEPSY
     Dosage: 500 MG, PER DAY
     Route: 048
     Dates: start: 201701, end: 20171126
  2. URBANYL [Concomitant]
     Active Substance: CLOBAZAM
     Indication: EPILEPSY
     Dosage: 2 DF, PER DAY
     Route: 048
     Dates: start: 20170804, end: 201711
  3. TOPIRAMATE. [Suspect]
     Active Substance: TOPIRAMATE
     Indication: EPILEPSY
     Dosage: 40 MG, PER DAY
     Route: 048
     Dates: start: 20171025, end: 20171126
  4. LAMOTRIGINE. [Suspect]
     Active Substance: LAMOTRIGINE
     Indication: EPILEPSY
     Dosage: 100 MG, PER DAY
     Route: 048
     Dates: start: 20170419, end: 20171126

REACTIONS (3)
  - Mixed liver injury [Recovered/Resolved]
  - Hepatic steatosis [Unknown]
  - Hepatomegaly [Unknown]

NARRATIVE: CASE EVENT DATE: 20171130
